FAERS Safety Report 17964621 (Version 1)
Quarter: 2020Q2

REPORT INFORMATION
  Report Type: Spontaneous
  Country: DK (occurrence: DK)
  Receive Date: 20200630
  Receipt Date: 20200630
  Transmission Date: 20200714
  Serious: Yes (Other)
  Sender: FDA-Public Use
  Company Number: DK-BAXTER-2020BAX012082

PATIENT
  Sex: Female

DRUGS (8)
  1. ADRIAMYCIN [Suspect]
     Active Substance: DOXORUBICIN HYDROCHLORIDE
     Indication: HODGKIN^S DISEASE
     Dosage: 2 SERIES OF OPPA (DAY 1+ DAY 15)
     Route: 042
     Dates: start: 20050310, end: 20050725
  2. NATULAN [Suspect]
     Active Substance: PROCARBAZINE HYDROCHLORIDE
     Indication: HODGKIN^S DISEASE
     Dosage: 2 SERIES OF OPPA (DAY1 TO DAY15 ORALLY)
     Route: 048
     Dates: start: 20050310, end: 20050725
  3. ONCOVIN [Suspect]
     Active Substance: VINCRISTINE SULFATE
     Dosage: 2 SERIES OF COPP (DAY 1 AND DAY 8)(MAX OF 2.0 MG PER DOSE)
     Route: 042
     Dates: start: 20050310, end: 20050725
  4. SENDOXAN [Suspect]
     Active Substance: CYCLOPHOSPHAMIDE
     Indication: HODGKIN^S DISEASE
     Dosage: 2 SERIES OF COPP (DAY 1+8)
     Route: 042
     Dates: start: 20050310, end: 20050725
  5. NATULAN [Suspect]
     Active Substance: PROCARBAZINE HYDROCHLORIDE
     Dosage: 2 SERIES OF COPP (DAY1 TO DAY15 ORALLY)
     Route: 048
     Dates: start: 20050310, end: 20050725
  6. ONCOVIN [Suspect]
     Active Substance: VINCRISTINE SULFATE
     Indication: HODGKIN^S DISEASE
     Dosage: 2 SERIES OF OPPA (DAY 1,8 AND 15) (MAX OF 2.0 MG PER DOSE)
     Route: 042
     Dates: start: 20050310, end: 20050725
  7. PREDNISOLON [Suspect]
     Active Substance: PREDNISOLONE
     Indication: HODGKIN^S DISEASE
     Dosage: 2 SERIES OF OPPA (DAY 1 TO DAY 15)
     Route: 048
     Dates: start: 20050310, end: 20050725
  8. PREDNISOLON [Suspect]
     Active Substance: PREDNISOLONE
     Dosage: 2 SERIES OF COPP (DAY 1 TO DAY 15)
     Route: 048
     Dates: start: 20050310, end: 20050725

REACTIONS (4)
  - Arthralgia [Not Recovered/Not Resolved]
  - Synovitis [Recovered/Resolved]
  - Joint destruction [Recovered/Resolved]
  - Bone infarction [Not Recovered/Not Resolved]

NARRATIVE: CASE EVENT DATE: 2013
